FAERS Safety Report 17948545 (Version 1)
Quarter: 2020Q2

REPORT INFORMATION
  Report Type: Spontaneous
  Country: GB (occurrence: GB)
  Receive Date: 20200626
  Receipt Date: 20200626
  Transmission Date: 20200714
  Serious: Yes (Death, Life-Threatening)
  Sender: FDA-Public Use
  Company Number: GB-PFIZER INC-2020244064

PATIENT
  Age: 53 Year
  Sex: Female

DRUGS (15)
  1. CHLORTHALIDONE. [Suspect]
     Active Substance: CHLORTHALIDONE
     Dosage: 100 MG, ALTERNATE DAY
     Route: 048
     Dates: start: 1969
  2. PHENOBARBITAL. [Concomitant]
     Active Substance: PHENOBARBITAL
     Indication: STATUS EPILEPTICUS
     Dosage: UNK
     Dates: start: 1969
  3. ISOPRENALINE [Concomitant]
     Active Substance: ISOPROTERENOL HYDROCHLORIDE
     Indication: PERIPHERAL CIRCULATORY FAILURE
     Dosage: UNK (INFUSION)
     Dates: start: 1969
  4. PHENYTOIN SODIUM. [Suspect]
     Active Substance: PHENYTOIN SODIUM
     Dosage: 25 MG/KG
     Dates: start: 1969
  5. KANAMYCIN A SULFATE. [Concomitant]
     Active Substance: KANAMYCIN A SULFATE
     Indication: PNEUMONIA
     Dosage: UNK
     Dates: start: 1969, end: 1969
  6. KANAMYCIN A SULFATE. [Concomitant]
     Active Substance: KANAMYCIN A SULFATE
     Indication: ANTIBIOTIC THERAPY
  7. FRUSEMIDE [FUROSEMIDE] [Suspect]
     Active Substance: FUROSEMIDE
     Dosage: 40 MG, DAILY
     Route: 042
     Dates: start: 1969
  8. DIGOXIN. [Concomitant]
     Active Substance: DIGOXIN
     Dosage: 0.25 MG, DAILY
  9. HYDROCORTISONE SODIUM SUCCINATE [Suspect]
     Active Substance: HYDROCORTISONE SODIUM SUCCINATE
     Indication: BRAIN OEDEMA
     Dosage: 100 MG, 4X/DAY
     Route: 042
     Dates: start: 1969
  10. DEXTRAN [Concomitant]
     Active Substance: DEXTRAN
     Indication: PERIPHERAL CIRCULATORY FAILURE
     Dosage: UNK
     Dates: start: 1969
  11. SLOW K [Concomitant]
     Active Substance: POTASSIUM CHLORIDE
     Dosage: 1200 MG, 2X/DAY (SLOW)
  12. WARFARIN [Concomitant]
     Active Substance: WARFARIN
     Dosage: UNK
  13. AMPICILLIN [AMPICILLIN SODIUM] [Concomitant]
     Indication: PNEUMONIA KLEBSIELLA
     Dosage: UNK
     Dates: start: 1969
  14. AMPICILLIN [AMPICILLIN SODIUM] [Concomitant]
     Indication: ANTIBIOTIC THERAPY
  15. PHENYTOIN SODIUM. [Suspect]
     Active Substance: PHENYTOIN SODIUM
     Indication: VENTRICULAR EXTRASYSTOLES
     Dosage: 250 MG (FIVE INJECTIONS)
     Route: 042
     Dates: start: 1969

REACTIONS (1)
  - Hyperglycaemic hyperosmolar nonketotic syndrome [Fatal]
